FAERS Safety Report 6942804-7 (Version None)
Quarter: 2010Q3

REPORT INFORMATION
  Report Type: 
  Country: None (occurrence: None)
  Receive Date: 20100825
  Receipt Date: 20100825
  Transmission Date: 20110219
  Serious: Yes (Other)
  Sender: FDA-Public Use
  Company Number: None

PATIENT
  Age: 56 Year
  Sex: Female
  Weight: 63.5036 kg

DRUGS (3)
  1. HYDROCORTISONE [Suspect]
     Indication: ADDISON'S DISEASE
     Dosage: 20MG P.O.
     Route: 048
     Dates: start: 20100407
  2. FLORINEF [Concomitant]
  3. LEVOTHYROXINE [Concomitant]

REACTIONS (3)
  - ASTHENIA [None]
  - DRUG EFFECT DECREASED [None]
  - PRODUCT SUBSTITUTION ISSUE [None]
